FAERS Safety Report 26019597 (Version 1)
Quarter: 2025Q4

REPORT INFORMATION
  Report Type: Spontaneous
  Country: US (occurrence: None)
  Receive Date: 20251107
  Receipt Date: 20251107
  Transmission Date: 20260118
  Serious: Yes (Hospitalization)
  Sender: FDA-CTU
  Company Number: None

PATIENT
  Age: 41 Year
  Sex: Female
  Weight: 122 kg

DRUGS (1)
  1. EPYSQLI [Suspect]
     Active Substance: ECULIZUMAB-AAGH
     Indication: Haemolytic uraemic syndrome
     Dosage: OTHER FREQUENCY : ONCE;?
     Route: 041
     Dates: start: 20250815, end: 20250915

REACTIONS (1)
  - Fungaemia [None]

NARRATIVE: CASE EVENT DATE: 20251101
